FAERS Safety Report 5252827-4 (Version None)
Quarter: 2007Q1

REPORT INFORMATION
  Report Type: 
  Country: None (occurrence: None)
  Receive Date: 20070227
  Receipt Date: 20070216
  Transmission Date: 20070707
  Serious: Yes (Disabling)
  Sender: FDA-Public Use
  Company Number: GXKR2007GB01755

PATIENT
  Age: 67 Year
  Sex: Female
  Weight: 85 kg

DRUGS (10)
  1. TRIMETHOPRIM [Suspect]
     Indication: URINARY TRACT INFECTION
     Dosage: 100 MG, BID, ORAL
     Route: 048
     Dates: end: 20070117
  2. ALFACALCIDOL (ALFACALCIDOL) [Concomitant]
  3. AMITRIPTYLINE HCL [Concomitant]
  4. ASCORBIC ACID [Concomitant]
  5. CALCICHEW (CALCIUM CARBONATE) [Concomitant]
  6. CODEINE SUL TAB [Concomitant]
  7. FOLIC ACID [Concomitant]
  8. IRON (IRON) [Concomitant]
  9. RANITIDINE [Concomitant]
  10. TEMAZEPAM [Concomitant]

REACTIONS (3)
  - PAIN [None]
  - PRURITUS [None]
  - STAPHYLOCOCCAL SCALDED SKIN SYNDROME [None]
